FAERS Safety Report 8491237-3 (Version None)
Quarter: 2012Q3

REPORT INFORMATION
  Report Type: 
  Country: None (occurrence: None)
  Receive Date: 20120706
  Receipt Date: 20120629
  Transmission Date: 20120928
  Serious: Yes (Other)
  Sender: FDA-Public Use
  Company Number: PHHY2012VE034029

PATIENT
  Sex: Female

DRUGS (4)
  1. DICLOFENAC SODIUM [Concomitant]
  2. CALCIUM [Concomitant]
  3. GLUCOSAMINE [Concomitant]
  4. ZOLEDRONOC ACID [Suspect]
     Indication: OSTEOPOROSIS
     Dosage: 5 MG, ONCE A YEAR
     Route: 042
     Dates: start: 20120123

REACTIONS (5)
  - ARTHRALGIA [None]
  - ASTHMA [None]
  - INFLUENZA [None]
  - PAIN IN EXTREMITY [None]
  - CONCOMITANT DISEASE AGGRAVATED [None]
